FAERS Safety Report 5461056-0 (Version None)
Quarter: 2007Q3

REPORT INFORMATION
  Report Type: 
  Country: None (occurrence: None)
  Receive Date: 20070820
  Receipt Date: 20070627
  Transmission Date: 20080115
  Serious: No
  Sender: FDA-Public Use
  Company Number: TPA2007A01390

PATIENT
  Age: 5 Decade
  Sex: Female
  Weight: 45.3597 kg

DRUGS (5)
  1. ROZEREM [Suspect]
     Indication: INSOMNIA
     Dosage: 8 MG, HS, PER ORAL
     Route: 048
     Dates: start: 20070624
  2. XANAX [Concomitant]
  3. NEFAZODONE HCL [Concomitant]
  4. LAMICTAL [Concomitant]
  5. HYDROCODONE/ACETAMINOPHEN (PARACETAMOL, HYDROCODONE BITARTRATE) [Concomitant]

REACTIONS (2)
  - FATIGUE [None]
  - NIGHTMARE [None]
